FAERS Safety Report 12716657 (Version 1)
Quarter: 2016Q3

REPORT INFORMATION
  Report Type: Spontaneous
  Country: US (occurrence: US)
  Receive Date: 20160906
  Receipt Date: 20160906
  Transmission Date: 20161109
  Serious: Yes (Other)
  Sender: FDA-Public Use
  Company Number: None

PATIENT
  Age: 71 Year
  Sex: Male
  Weight: 61 kg

DRUGS (1)
  1. CEFAZOLIN [Suspect]
     Active Substance: CEFAZOLIN
     Indication: PREOPERATIVE CARE
     Dosage: OTHER STRENGTH:;OTHER DOSE:;OTHER FREQUENCY:ONCE;OTHER ROUTE:
     Route: 041
     Dates: start: 20160831, end: 20160831

REACTIONS (4)
  - Nausea [None]
  - Generalised erythema [None]
  - Dyspnoea [None]
  - Pruritus [None]

NARRATIVE: CASE EVENT DATE: 20160831
